FAERS Safety Report 6579505-3 (Version None)
Quarter: 2010Q1

REPORT INFORMATION
  Report Type: 
  Country: None (occurrence: None)
  Receive Date: 20100203
  Receipt Date: 20100118
  Transmission Date: 20100710
  Serious: Yes (Death)
  Sender: FDA-Public Use
  Company Number: B0629568A

PATIENT
  Age: 86 Year
  Sex: Female

DRUGS (7)
  1. DIGOXIN [Suspect]
  2. WARFARIN SODIUM [Concomitant]
  3. FRUSEMIDE [Concomitant]
  4. AMLODIPINE [Concomitant]
  5. BENZAPERIL [Concomitant]
  6. SPIRONOLACTONE [Concomitant]
  7. LEVOTHYROXINE SODIUM [Concomitant]

REACTIONS (30)
  - ACTIVATED PARTIAL THROMBOPLASTIN TIME PROLONGED [None]
  - ALANINE AMINOTRANSFERASE INCREASED [None]
  - ASPARTATE AMINOTRANSFERASE INCREASED [None]
  - ATRIAL FIBRILLATION [None]
  - BLOOD CREATINE PHOSPHOKINASE MB INCREASED [None]
  - BLOOD CREATININE INCREASED [None]
  - BLOOD PHOSPHORUS INCREASED [None]
  - BLOOD POTASSIUM INCREASED [None]
  - BLOOD SODIUM DECREASED [None]
  - BLOOD UREA INCREASED [None]
  - BRADYCARDIA [None]
  - CARDIAC DISORDER [None]
  - CARDIAC MURMUR [None]
  - CEREBRAL ATROPHY [None]
  - COAGULOPATHY [None]
  - DIARRHOEA [None]
  - FALL [None]
  - HAEMATOCRIT DECREASED [None]
  - HAEMOGLOBIN DECREASED [None]
  - HEAD INJURY [None]
  - HYPOTENSION [None]
  - HYPOTHERMIA [None]
  - INTERNATIONAL NORMALISED RATIO INCREASED [None]
  - LACUNAR INFARCTION [None]
  - NAUSEA [None]
  - OEDEMA PERIPHERAL [None]
  - PLEURAL EFFUSION [None]
  - PULSE PRESSURE DECREASED [None]
  - RALES [None]
  - VOMITING [None]
